FAERS Safety Report 7573670-7 (Version None)
Quarter: 2011Q2

REPORT INFORMATION
  Report Type: 
  Country: None (occurrence: None)
  Receive Date: 20110627
  Receipt Date: 20110622
  Transmission Date: 20111010
  Serious: Yes (Hospitalization)
  Sender: FDA-Public Use
  Company Number: US-PFIZER INC-2011138827

PATIENT
  Sex: Male
  Weight: 34.014 kg

DRUGS (8)
  1. HYDROCORTISONE [Concomitant]
     Dosage: 25 MG, UNK
     Route: 042
  2. VFEND [Suspect]
     Indication: PNEUMONIA
     Dosage: 4 DF, 2X/DAY
     Route: 048
     Dates: start: 20110617, end: 20110621
  3. REMERON [Concomitant]
     Dosage: 15 MG, DAILY
     Route: 048
  4. DIPHENHYDRAMINE [Concomitant]
     Dosage: 25 MG, AS NEEDED
     Route: 042
  5. MEROPENEM [Concomitant]
     Dosage: 700 MG, UNK
     Route: 042
  6. KETOROLAC [Concomitant]
     Dosage: 20 MG, AS NEEDED
  7. MIDODRINE [Concomitant]
     Dosage: 20 MG, DAILY
  8. BACTRIM DS [Concomitant]
     Dosage: 800 MG/ 160 MG
     Route: 048

REACTIONS (2)
  - CARDIOMYOPATHY [None]
  - DYSPNOEA [None]
